FAERS Safety Report 22038990 (Version 2)
Quarter: 2023Q1

REPORT INFORMATION
  Report Type: Spontaneous
  Country: US (occurrence: US)
  Receive Date: 20230227
  Receipt Date: 20230330
  Transmission Date: 20230418
  Serious: Yes (Other)
  Sender: FDA-Public Use
  Company Number: US-JNJFOC-20230249750

PATIENT
  Age: 24 Year
  Sex: Male
  Weight: 53.572 kg

DRUGS (5)
  1. INVEGA TRINZA [Suspect]
     Active Substance: PALIPERIDONE PALMITATE
     Indication: Bipolar disorder
     Route: 030
     Dates: start: 20191121
  2. INVEGA TRINZA [Suspect]
     Active Substance: PALIPERIDONE PALMITATE
     Indication: Schizophrenia
  3. INVEGA TRINZA [Suspect]
     Active Substance: PALIPERIDONE PALMITATE
  4. BENZTROPINE [Concomitant]
     Active Substance: BENZTROPINE
     Indication: Extrapyramidal disorder
     Route: 048
     Dates: start: 20210922
  5. OXCARBAZEPINE [Concomitant]
     Active Substance: OXCARBAZEPINE
     Route: 048
     Dates: start: 20221020

REACTIONS (4)
  - Schizophrenia [Unknown]
  - Product administered at inappropriate site [Unknown]
  - Injection site pain [Unknown]
  - Drug ineffective [Unknown]

NARRATIVE: CASE EVENT DATE: 20230101
